FAERS Safety Report 10494226 (Version 1)
Quarter: 2014Q4

REPORT INFORMATION
  Report Type: Spontaneous
  Country: US (occurrence: US)
  Receive Date: 20141003
  Receipt Date: 20141003
  Transmission Date: 20150528
  Serious: Yes (Death)
  Sender: FDA-Public Use
  Company Number: US-GLAXOSMITHKLINE-A1080705A

PATIENT
  Sex: Male

DRUGS (1)
  1. HYCAMTIN [Suspect]
     Active Substance: TOPOTECAN HYDROCHLORIDE
     Indication: MALIGNANT MELANOMA
     Dosage: 1MG UNKNOWN
     Route: 065
     Dates: start: 20140214

REACTIONS (3)
  - Death [Fatal]
  - Hospice care [Fatal]
  - Disease progression [Fatal]
